FAERS Safety Report 12468931 (Version 2)
Quarter: 2016Q3

REPORT INFORMATION
  Report Type: Report from Study
  Country: US (occurrence: US)
  Receive Date: 20160615
  Receipt Date: 20160705
  Transmission Date: 20161109
  Serious: Yes (Other)
  Sender: FDA-Public Use
  Company Number: US-GILEAD-2016-0216460

PATIENT
  Age: 79 Year
  Sex: Male

DRUGS (2)
  1. IDELALISIB [Suspect]
     Active Substance: IDELALISIB
     Indication: LYMPHOMA
     Dosage: 150 MG, BID
     Route: 048
     Dates: start: 20150825, end: 20160601
  2. GAMMAGLOBULIN [Concomitant]
     Active Substance: HUMAN IMMUNOGLOBULIN G
     Dosage: 30 G, UNK
     Route: 042

REACTIONS (12)
  - Lymphoma [Unknown]
  - Type 2 diabetes mellitus [Unknown]
  - Fatigue [Unknown]
  - Disease progression [Unknown]
  - Muscular weakness [Unknown]
  - Rales [Unknown]
  - Depression [Unknown]
  - Multifocal motor neuropathy [Unknown]
  - Pulmonary mass [Unknown]
  - Lesion excision [Unknown]
  - Breath sounds abnormal [Unknown]
  - Cough [Unknown]
